FAERS Safety Report 17496063 (Version 1)
Quarter: 2020Q1

REPORT INFORMATION
  Report Type: Report from Study
  Country: RO (occurrence: RO)
  Receive Date: 20200304
  Receipt Date: 20200304
  Transmission Date: 20200409
  Serious: Yes (Other)
  Sender: FDA-Public Use
  Company Number: RO-PFIZER INC-2020090447

PATIENT
  Age: 66 Year
  Sex: Female
  Weight: 93 kg

DRUGS (1)
  1. TRASTUZUMAB. [Suspect]
     Active Substance: TRASTUZUMAB
     Indication: BREAST CANCER
     Dosage: 600 MG, UNK
     Route: 041
     Dates: start: 201908

REACTIONS (1)
  - Cellulitis staphylococcal [Unknown]
